FAERS Safety Report 25309930 (Version 3)
Quarter: 2025Q2

REPORT INFORMATION
  Report Type: Spontaneous
  Country: FR (occurrence: FR)
  Receive Date: 20250514
  Receipt Date: 20250609
  Transmission Date: 20250717
  Serious: Yes (Death, Other)
  Sender: ASTELLAS
  Company Number: FR-GILEAD-2025-0712739

PATIENT
  Age: 66 Year
  Sex: Female

DRUGS (4)
  1. AMPHOTERICIN B [Suspect]
     Active Substance: AMPHOTERICIN B
     Indication: Fungal infection
     Dosage: 150 MG IV 1/DAY
     Route: 042
     Dates: start: 20250413, end: 20250423
  2. AMPHOTERICIN B [Suspect]
     Active Substance: AMPHOTERICIN B
     Route: 065
  3. FUNGIZONE [Suspect]
     Active Substance: AMPHOTERICIN B
     Indication: Diarrhoea infectious
     Route: 042
     Dates: start: 20250428
  4. FUNGIZONE [Suspect]
     Active Substance: AMPHOTERICIN B
     Route: 042

REACTIONS (2)
  - Cardio-respiratory arrest [Fatal]
  - Medication error [Fatal]

NARRATIVE: CASE EVENT DATE: 20250428
